FAERS Safety Report 10472368 (Version 1)
Quarter: 2014Q3

REPORT INFORMATION
  Report Type: Spontaneous
  Country: US (occurrence: None)
  Receive Date: 20140922
  Receipt Date: 20140922
  Transmission Date: 20150326
  Serious: Yes (Hospitalization)
  Sender: FDA-Public Use
  Company Number: US-AIKEM-000713

PATIENT
  Age: 62 Year
  Sex: Male

DRUGS (5)
  1. ASPIRIN (ASPIRIN) [Concomitant]
     Active Substance: ASPIRIN
  2. LISINOPRIL (LISINOPRIL) [Concomitant]
     Active Substance: LISINOPRIL
  3. METOPROLOL (METOPROLOL) [Concomitant]
     Active Substance: METOPROLOL
  4. HYDRALAZINE (HYDRALAZINE) [Suspect]
     Active Substance: HYDRALAZINE HYDROCHLORIDE
     Indication: HYPERTENSION
  5. SIMVASTATIN (SIMVASTATIN) [Concomitant]
     Active Substance: SIMVASTATIN

REACTIONS (9)
  - Anaemia [None]
  - Pulmonary haemorrhage [None]
  - Presyncope [None]
  - Decreased appetite [None]
  - Anti-neutrophil cytoplasmic antibody positive vasculitis [None]
  - Asthenia [None]
  - Glomerulonephritis [None]
  - Diverticulum [None]
  - Weight decreased [None]
